FAERS Safety Report 18080914 (Version 1)
Quarter: 2020Q3

REPORT INFORMATION
  Report Type: Spontaneous
  Country: US (occurrence: US)
  Receive Date: 20200728
  Receipt Date: 20200728
  Transmission Date: 20201103
  Serious: No
  Sender: FDA-Public Use
  Company Number: US-MISSION PHARMACAL COMPANY-2087829

PATIENT
  Age: 18 Year
  Sex: Female
  Weight: 68.18 kg

DRUGS (1)
  1. THIOLA EC [Suspect]
     Active Substance: TIOPRONIN
     Indication: CYSTINURIA
     Route: 048
     Dates: start: 20200327

REACTIONS (8)
  - Nephrolithiasis [Unknown]
  - Abnormal loss of weight [Unknown]
  - Pain [Unknown]
  - Pyrexia [Unknown]
  - Nausea [Unknown]
  - Vomiting [Unknown]
  - Decreased appetite [Unknown]
  - Retching [Unknown]

NARRATIVE: CASE EVENT DATE: 20200710
